FAERS Safety Report 9325544 (Version 1)
Quarter: 2013Q2

REPORT INFORMATION
  Report Type: Spontaneous
  Country: CH (occurrence: CH)
  Receive Date: 20130604
  Receipt Date: 20130604
  Transmission Date: 20140414
  Serious: Yes (Hospitalization)
  Sender: FDA-Public Use
  Company Number: PHHY2013CH055272

PATIENT
  Age: 44 Year
  Sex: Male

DRUGS (18)
  1. LEPONEX [Suspect]
     Indication: SCHIZOPHRENIA, PARANOID TYPE
     Dosage: 125 MG, DAILY
     Route: 048
  2. LEPONEX [Suspect]
     Dosage: 175 MG, QD
     Route: 048
  3. LEPONEX [Suspect]
     Dosage: 250 MG, QD
     Route: 048
  4. VALIUM [Suspect]
     Indication: INSOMNIA
     Dosage: 20 MG, (2 TABLETS 0-0-1-0)
     Route: 048
     Dates: start: 20130419, end: 20130419
  5. SOLIAN [Suspect]
     Indication: SCHIZOPHRENIA, PARANOID TYPE
     Dosage: 200 MG, UNK (2-0-3-0)
     Route: 048
  6. SOLIAN [Suspect]
     Dosage: 1000 MG, QD
     Route: 048
  7. SOLIAN [Suspect]
     Dosage: 400 MG, QD
     Route: 048
  8. METHADON [Suspect]
     Indication: MENTAL DISORDER
     Dosage: 30 MG, DAILY
     Route: 048
  9. METHADON [Suspect]
     Indication: ABNORMAL BEHAVIOUR
  10. CATAPRESSAN [Suspect]
     Indication: HYPERTENSION
     Dosage: 150 UG, QID
     Route: 048
  11. ACIDUM FOLICUM [Concomitant]
     Dosage: 5 MG, UNK (1-0-0)
     Route: 048
  12. DUPHALAC [Concomitant]
     Dosage: 10 ML, UNK (1-1-1-0)
     Route: 048
     Dates: end: 201304
  13. BENERVA [Concomitant]
     Dosage: 300 MG, UNK (1-0-0)
     Route: 048
  14. TRIATEC [Concomitant]
     Dosage: 5 MG, UNK (1-0-0-0)
     Route: 048
  15. TRIATEC [Concomitant]
     Dosage: 10 MG, QD
  16. TRIATEC COMP [Concomitant]
     Dosage: 5 MG, UNK (1-0-0)
     Route: 048
     Dates: end: 201304
  17. NORVASC [Concomitant]
     Dosage: 10 MG, UNK (1-0-0-0)
     Route: 048
  18. AKINETON [Concomitant]
     Dosage: 2 MG, UNK  (1-1-1)

REACTIONS (4)
  - Respiratory failure [Recovered/Resolved]
  - Pneumonia aspiration [Recovered/Resolved]
  - Somnolence [Recovered/Resolved]
  - Vomiting [Recovered/Resolved]
